FAERS Safety Report 16938306 (Version 1)
Quarter: 2019Q4

REPORT INFORMATION
  Report Type: Spontaneous
  Country: JP (occurrence: JP)
  Receive Date: 20191019
  Receipt Date: 20191019
  Transmission Date: 20200122
  Serious: Yes (Other)
  Sender: FDA-Public Use
  Company Number: NVSC2019JP008240

PATIENT
  Age: 71 Year
  Sex: Female

DRUGS (7)
  1. 5 FLUOROURACIL [Suspect]
     Active Substance: FLUOROURACIL
     Dosage: 1920 MG/M2, CYCLIC (2,720 MG)
     Route: 065
  2. OXALIPLATIN. [Suspect]
     Active Substance: OXALIPLATIN
     Indication: COLORECTAL CANCER METASTATIC
     Dosage: 60 MG/M2, CYCLIC (86 MG)
     Route: 065
  3. CALCIUM FOLINATE [Suspect]
     Active Substance: LEUCOVORIN CALCIUM
     Indication: COLORECTAL CANCER METASTATIC
     Dosage: 200 MG/M2, CYCLIC (288 MG)
     Route: 065
  4. 5 FLUOROURACIL [Suspect]
     Active Substance: FLUOROURACIL
     Dosage: 2400 MG/M2, CYCLIC (3,400 MG)
     Route: 065
  5. 5 FLUOROURACIL [Suspect]
     Active Substance: FLUOROURACIL
     Dosage: 320 MG/M2, CYCLIC (460 MG)
     Route: 040
  6. BEVACIZUMAB. [Suspect]
     Active Substance: BEVACIZUMAB
     Indication: COLORECTAL CANCER METASTATIC
     Dosage: 5 MG/KG, CYCLIC (264 MG)
     Route: 065
  7. 5 FLUOROURACIL [Suspect]
     Active Substance: FLUOROURACIL
     Indication: COLORECTAL CANCER METASTATIC
     Dosage: 400 MG/M2, CYCLIC (576 MG)
     Route: 040

REACTIONS (6)
  - Malignant neoplasm progression [Unknown]
  - Thrombocytopenia [Unknown]
  - Neutropenia [Unknown]
  - Colorectal cancer metastatic [Unknown]
  - Fatigue [Unknown]
  - Bone marrow failure [Unknown]
